FAERS Safety Report 21508562 (Version 1)
Quarter: 2022Q4

REPORT INFORMATION
  Report Type: Spontaneous
  Country: US (occurrence: None)
  Receive Date: 20221026
  Receipt Date: 20221026
  Transmission Date: 20230113
  Serious: Yes (Hospitalization)
  Sender: FDA-Public Use
  Company Number: None

PATIENT
  Sex: Male

DRUGS (16)
  1. CREON [Suspect]
     Active Substance: PANCRELIPASE AMYLASE\PANCRELIPASE LIPASE\PANCRELIPASE PROTEASE
     Indication: Cystic fibrosis
     Dosage: OTHER QUANTITY : 24000-76000UNIT;?FREQUENCY : DAILY;?TAKE 4 CAPSULES BY MOUTH WITH EACH MEAL AND TAK
     Route: 048
     Dates: start: 20210609
  2. AMOX/K CLAV SUS [Concomitant]
  3. BUDESONIDE SUS [Concomitant]
  4. CEFDINIR SUS [Concomitant]
  5. COMPLETE FORM SOFTGEL [Concomitant]
  6. HYDROCO/APAP SOL [Concomitant]
  7. MVW COMPLETE CAP D3000 [Concomitant]
  8. NEO/POLY/HC SUS OTIC [Concomitant]
  9. OFLOXACIN DRO OTIC [Concomitant]
  10. PANCRECARB CAP MS-4 [Concomitant]
  11. PEPCID SUS [Concomitant]
  12. PREVACID TAB STB [Concomitant]
  13. Q-DRYL LIQ [Concomitant]
  14. SOD CHL NEB [Concomitant]
  15. SODIUM CHLOR NEB [Concomitant]
  16. VUSION OIN [Concomitant]

REACTIONS (2)
  - Cough [None]
  - Upper respiratory tract infection [None]
